FAERS Safety Report 7579281-1 (Version None)
Quarter: 2011Q2

REPORT INFORMATION
  Report Type: 
  Country: None (occurrence: None)
  Receive Date: 20110628
  Receipt Date: 20110621
  Transmission Date: 20111010
  Serious: Yes (Other)
  Sender: FDA-Public Use
  Company Number: US-RB-026156-11

PATIENT
  Age: 22 Year
  Sex: Female

DRUGS (2)
  1. KLONOPIN [Suspect]
     Indication: PRODUCT USED FOR UNKNOWN INDICATION
     Dosage: DOSING INFORMATION UNKNOWN
     Route: 065
  2. SUBOXONE [Suspect]
     Indication: PRODUCT USED FOR UNKNOWN INDICATION
     Dosage: SUBLINGUAL FILM- DOSAGE INFORMATION UNKNOWN
     Route: 065

REACTIONS (6)
  - CONVULSION [None]
  - FATIGUE [None]
  - ROAD TRAFFIC ACCIDENT [None]
  - EXPOSURE TO TOXIC AGENT [None]
  - UNDERDOSE [None]
  - OFF LABEL USE [None]
